FAERS Safety Report 8324956-X (Version None)
Quarter: 2012Q2

REPORT INFORMATION
  Report Type: 
  Country: None (occurrence: None)
  Receive Date: 20120501
  Receipt Date: 20120426
  Transmission Date: 20120825
  Serious: Yes (Hospitalization)
  Sender: FDA-Public Use
  Company Number: US-BRACCO-007900

PATIENT
  Sex: Female

DRUGS (2)
  1. MULTIHANCE [Suspect]
     Indication: DIAGNOSTIC PROCEDURE
     Dates: start: 20120320, end: 20120320
  2. MULTIHANCE [Suspect]
     Indication: PRODUCT USED FOR UNKNOWN INDICATION
     Dates: start: 20120320, end: 20120320

REACTIONS (5)
  - URTICARIA [None]
  - VOMITING [None]
  - PRURITUS [None]
  - OXYGEN SATURATION DECREASED [None]
  - DYSPNOEA [None]
